FAERS Safety Report 10371378 (Version 1)
Quarter: 2014Q3

REPORT INFORMATION
  Report Type: Spontaneous
  Country: US (occurrence: None)
  Receive Date: 20140807
  Receipt Date: 20140807
  Transmission Date: 20150326
  Serious: Yes (Hospitalization)
  Sender: FDA-Public Use
  Company Number: None

PATIENT
  Age: 67 Year
  Sex: Male
  Weight: 102.06 kg

DRUGS (1)
  1. GENERIC LIPITOR [Suspect]
     Active Substance: ATORVASTATIN CALCIUM
     Indication: BLOOD CHOLESTEROL INCREASED
     Dosage: ONE 40MG. PILL  ONCE DAILY TAKEN BY MOUTH
     Route: 048
     Dates: start: 20111130, end: 20140806

REACTIONS (2)
  - Transient global amnesia [None]
  - Confusional state [None]

NARRATIVE: CASE EVENT DATE: 20140803
